FAERS Safety Report 7867307-7 (Version None)
Quarter: 2011Q4

REPORT INFORMATION
  Report Type: 
  Country: None (occurrence: None)
  Receive Date: 20111028
  Receipt Date: 20111019
  Transmission Date: 20120403
  Serious: Yes (Hospitalization)
  Sender: FDA-Public Use
  Company Number: ES-JNJFOC-2009018305

PATIENT
  Age: 32 Year
  Sex: Male

DRUGS (2)
  1. CETIRIZINE HCL [Suspect]
     Route: 065
  2. CETIRIZINE HCL [Suspect]
     Indication: RHINITIS
     Dosage: DAILY DOSE TEXT: 10MG
     Route: 065
     Dates: start: 20060401

REACTIONS (1)
  - CHOLESTASIS [None]
